FAERS Safety Report 11633108 (Version 1)
Quarter: 2015Q4

REPORT INFORMATION
  Report Type: Spontaneous
  Country: CN (occurrence: CN)
  Receive Date: 20151015
  Receipt Date: 20151015
  Transmission Date: 20160304
  Serious: Yes (Other)
  Sender: FDA-Public Use
  Company Number: CN-PFIZER INC-2015341988

PATIENT
  Age: 59 Year
  Sex: Female
  Weight: 50 kg

DRUGS (6)
  1. CEFOTIAM [Suspect]
     Active Substance: CEFOTIAM
     Indication: PYREXIA
     Dosage: 2 G, 3X/DAY
     Route: 041
     Dates: start: 20150210, end: 20150211
  2. CELEBREX [Suspect]
     Active Substance: CELECOXIB
     Indication: PAIN
     Dosage: 200 MG, 2X/DAY
     Route: 048
     Dates: start: 20150210, end: 20150214
  3. EPERISONE HYDROCHLORIDE [Suspect]
     Active Substance: EPERISONE HYDROCHLORIDE
     Indication: SPINAL PAIN
     Dosage: 50 MG, 3X/DAY
     Route: 048
     Dates: start: 20150213, end: 20150214
  4. RABEPRAZOLE [Suspect]
     Active Substance: RABEPRAZOLE
     Indication: PROPHYLAXIS
     Dosage: 10 MG, 1X/DAY
     Route: 048
     Dates: start: 20150213, end: 20150217
  5. CINEPAZIDE MALEATE [Suspect]
     Active Substance: CINEPAZIDE MALEATE
     Indication: PROMOTION OF PERIPHERAL CIRCULATION
     Dosage: 320 MG, 1X/DAY
     Route: 041
     Dates: start: 20150216, end: 20150217
  6. FASUDIL HYDROCHLORIDE HYDRATE [Suspect]
     Active Substance: FASUDIL HYDROCHLORIDE HYDRATE
     Indication: THROMBOSIS
     Dosage: 2 ML, 2X/DAY
     Route: 041
     Dates: start: 20150213, end: 20150216

REACTIONS (1)
  - Hepatocellular injury [Recovering/Resolving]

NARRATIVE: CASE EVENT DATE: 20150225
